FAERS Safety Report 21977929 (Version 1)
Quarter: 2023Q1

REPORT INFORMATION
  Report Type: Report from Study
  Country: AU (occurrence: AU)
  Receive Date: 20230210
  Receipt Date: 20230210
  Transmission Date: 20230418
  Serious: Yes (Other)
  Sender: FDA-Public Use
  Company Number: AU-ABBVIE-4264829

PATIENT
  Sex: Female

DRUGS (2)
  1. CARBIDOPA\LEVODOPA [Suspect]
     Active Substance: CARBIDOPA\LEVODOPA
     Indication: Parkinson^s disease
     Dosage: DUODOPA 100 ML GEL CASSETTE, MORNING DOSE 7.1 ML, EXTRA DOSE 0.8 ML/HOUR
     Route: 050
     Dates: start: 20190726
  2. CARBIDOPA\LEVODOPA [Suspect]
     Active Substance: CARBIDOPA\LEVODOPA
     Dosage: CONTINUOUS RATE REMAINS LOWERED TO 1.8 MILLITER,  16 HOURS
     Route: 050

REACTIONS (1)
  - Iron deficiency [Recovering/Resolving]
